FAERS Safety Report 5080668-X (Version None)
Quarter: 2006Q3

REPORT INFORMATION
  Report Type: 
  Country: None (occurrence: None)
  Receive Date: 20060809
  Receipt Date: 20060801
  Transmission Date: 20061208
  Serious: Yes (Other)
  Sender: FDA-Public Use
  Company Number: 2006_000021

PATIENT
  Age: 60 Year
  Sex: Female

DRUGS (1)
  1. DEPOCYT [Suspect]
     Indication: NON-HODGKIN'S LYMPHOMA
     Dosage: 50 MG; X2; INTH
     Route: 037
     Dates: start: 20060601, end: 20060701

REACTIONS (5)
  - FACIAL PALSY [None]
  - FACIAL PARESIS [None]
  - HYPOTONIA [None]
  - QUADRIPARESIS [None]
  - SOMNOLENCE [None]
